FAERS Safety Report 6464651-5 (Version None)
Quarter: 2009Q4

REPORT INFORMATION
  Report Type: 
  Country: None (occurrence: None)
  Receive Date: 20091201
  Receipt Date: 20091130
  Transmission Date: 20100525
  Serious: Yes (Hospitalization)
  Sender: FDA-Public Use
  Company Number: US-JNJFOC-20090907064

PATIENT
  Sex: Female
  Weight: 60 kg

DRUGS (22)
  1. GOLIMUMAB [Suspect]
     Route: 058
  2. GOLIMUMAB [Suspect]
     Route: 058
  3. GOLIMUMAB [Suspect]
     Route: 058
  4. GOLIMUMAB [Suspect]
     Route: 058
  5. GOLIMUMAB [Suspect]
     Route: 058
  6. GOLIMUMAB [Suspect]
     Route: 058
  7. GOLIMUMAB [Suspect]
     Route: 058
  8. GOLIMUMAB [Suspect]
     Route: 058
  9. GOLIMUMAB [Suspect]
     Indication: RHEUMATOID ARTHRITIS
     Route: 058
  10. PLACEBO [Suspect]
     Route: 058
  11. PLACEBO [Suspect]
     Route: 058
  12. PLACEBO [Suspect]
     Route: 058
  13. PLACEBO [Suspect]
     Indication: RHEUMATOID ARTHRITIS
     Route: 058
  14. ULTRAM [Concomitant]
     Route: 048
  15. FLEXERIL [Concomitant]
     Route: 048
  16. AMBIEN CR [Concomitant]
     Route: 048
  17. TYLENOL (CAPLET) [Concomitant]
     Route: 048
  18. ASPIRIN [Concomitant]
     Route: 048
  19. ACTONEL [Concomitant]
     Route: 048
  20. PREDNISONE [Concomitant]
     Route: 048
  21. OMEPRAZOLE [Concomitant]
     Route: 048
  22. AMOXICILLIN [Concomitant]
     Route: 048

REACTIONS (1)
  - BACTERAEMIA [None]
